FAERS Safety Report 6003735-2 (Version None)
Quarter: 2008Q4

REPORT INFORMATION
  Report Type: 
  Country: None (occurrence: None)
  Receive Date: 20081216
  Receipt Date: 20081202
  Transmission Date: 20090506
  Serious: Yes (Hospitalization)
  Sender: FDA-Public Use
  Company Number: US-AVENTIS-200818138US

PATIENT
  Sex: Female

DRUGS (17)
  1. LANTUS [Suspect]
     Indication: TYPE 2 DIABETES MELLITUS
     Route: 058
     Dates: end: 20080901
  2. LANTUS [Suspect]
     Route: 058
     Dates: start: 20071001
  3. LANTUS [Suspect]
     Route: 058
     Dates: start: 20080901, end: 20081101
  4. LANTUS [Suspect]
     Route: 058
     Dates: start: 20081115
  5. APIDRA [Suspect]
     Indication: TYPE 2 DIABETES MELLITUS
     Dosage: DOSE: 5-10 UNITS; FREQUENCY: BEFORE MEALS
     Route: 058
     Dates: start: 20080301, end: 20080907
  6. APIDRA [Suspect]
     Dosage: DOSE: 5-10 UNITS; FREQUENCY: BEFORE MEALS
     Route: 058
     Dates: start: 20081001
  7. ASPIRIN [Concomitant]
     Dosage: DOSE: UNK
  8. CLOPIDOGREL [Concomitant]
     Dosage: DOSE: UNKNOWN
  9. LASIX [Concomitant]
     Dosage: DOSE: UNKNOWN
  10. GABAPENTIN [Concomitant]
     Dosage: DOSE: UNKNOWN
  11. ORAL ANTIDIABETICS [Concomitant]
     Dosage: DOSE: UNKNOWN
  12. LIPITOR [Concomitant]
     Dosage: DOSE: UNKNOWN
  13. LISINOPRIL [Concomitant]
     Dosage: DOSE: UNKNOWN
  14. METOPROLOL [Concomitant]
     Dosage: DOSE: UNKNOWN
  15. NIFEDIPINE [Concomitant]
     Dosage: DOSE: UNKNOWN
  16. POTASSIUM CHLORIDE [Concomitant]
     Dosage: DOSE: UNKNOWN
  17. PLETAL [Concomitant]
     Dosage: DOSE: UNKNOWN

REACTIONS (1)
  - CEREBROVASCULAR ACCIDENT [None]
